FAERS Safety Report 4459556-5 (Version None)
Quarter: 2004Q3

REPORT INFORMATION
  Report Type: 
  Country: None (occurrence: None)
  Receive Date: 20040927
  Receipt Date: 20040407
  Transmission Date: 20050211
  Serious: Yes (Life-Threatening, Hospitalization, Other)
  Sender: FDA-Public Use
  Company Number: US-MERCK-0404USA01050

PATIENT
  Age: 66 Year
  Sex: Female

DRUGS (3)
  1. ZETIA [Suspect]
     Indication: HYPERCHOLESTEROLAEMIA
     Route: 048
     Dates: start: 20040601
  2. LOPID [Concomitant]
     Route: 065
  3. LIPASE [Concomitant]
     Route: 065

REACTIONS (2)
  - ADVERSE EVENT [None]
  - PANCREATITIS ACUTE [None]
